FAERS Safety Report 15932755 (Version 1)
Quarter: 2019Q1

REPORT INFORMATION
  Report Type: Spontaneous
  Country: US (occurrence: US)
  Receive Date: 20190207
  Receipt Date: 20190207
  Transmission Date: 20190417
  Serious: Yes (Other)
  Sender: FDA-Public Use
  Company Number: US-AMREGENT-20190166

PATIENT
  Age: 5 Month

DRUGS (1)
  1. DEXMEDETOMIDINE HYDROCHLORIDE INJECTION (0517-0995-25) [Suspect]
     Active Substance: DEXMEDETOMIDINE HYDROCHLORIDE
     Dosage: 1 MICROGRAM/KG/H
     Route: 042

REACTIONS (2)
  - Product use issue [Unknown]
  - Atrioventricular block second degree [Unknown]
